FAERS Safety Report 10646429 (Version 1)
Quarter: 2014Q4

REPORT INFORMATION
  Report Type: Spontaneous
  Country: US (occurrence: None)
  Receive Date: 20141203
  Receipt Date: 20141203
  Transmission Date: 20150529
  Serious: No
  Sender: FDA-Public Use
  Company Number: ALL1-2008-02205

PATIENT
  Age: 38 Year
  Sex: Female
  Weight: 66.2 kg

DRUGS (3)
  1. RITALIN (METHYLPHENIDATE HYDROCHLORIDE) [Concomitant]
     Active Substance: METHYLPHENIDATE HYDROCHLORIDE
  2. SYNTHROID [Concomitant]
     Active Substance: LEVOTHYROXINE SODIUM
  3. DAYTRANA [Suspect]
     Active Substance: METHYLPHENIDATE
     Indication: NARCOLEPSY
     Dates: start: 200711, end: 200801

REACTIONS (7)
  - Application site vesicles [None]
  - Application site discolouration [None]
  - Application site erythema [None]
  - Application site irritation [None]
  - Application site pruritus [None]
  - Off label use [None]
  - Application site swelling [None]

NARRATIVE: CASE EVENT DATE: 2007
